FAERS Safety Report 4340963-6 (Version None)
Quarter: 2004Q2

REPORT INFORMATION
  Report Type: 
  Country: None (occurrence: None)
  Receive Date: 20040413
  Receipt Date: 20040402
  Transmission Date: 20050107
  Serious: Yes (Hospitalization)
  Sender: FDA-Public Use
  Company Number: 2004207468JP

PATIENT
  Age: 74 Year
  Sex: Male

DRUGS (1)
  1. CAMPTOSAR [Suspect]
     Indication: GASTRIC CANCER
     Dosage: 80 MG/M2, CYCLIC, IV DRIP
     Route: 041
     Dates: start: 20040302, end: 20040309

REACTIONS (3)
  - DIARRHOEA [None]
  - GRANULOCYTOPENIA [None]
  - LEUKOPENIA [None]
